FAERS Safety Report 4559487-6 (Version None)
Quarter: 2005Q1

REPORT INFORMATION
  Report Type: 
  Country: None (occurrence: None)
  Receive Date: 20050119
  Receipt Date: 20050106
  Transmission Date: 20050727
  Serious: Yes (Other)
  Sender: FDA-Public Use
  Company Number: 2004094657

PATIENT
  Age: 33 Year
  Sex: Female
  Weight: 48.0813 kg

DRUGS (2)
  1. DEPO-PROVERA [Suspect]
     Indication: CONTRACEPTION
     Dosage: 150 MG (150 MG, 1ST INJ., EVERY 10-3 WEEKS), INTRAMUSCULAR
     Route: 030
     Dates: start: 20041115, end: 20041115
  2. LEVOTHYROXINE SODIUM (LVOTHYROXINE SODIUM) [Concomitant]

REACTIONS (10)
  - DIZZINESS [None]
  - FEELING ABNORMAL [None]
  - HOT FLUSH [None]
  - HYPERSENSITIVITY [None]
  - HYPOAESTHESIA [None]
  - MIGRAINE [None]
  - PULMONARY CONGESTION [None]
  - STRESS [None]
  - THYROID DISORDER [None]
  - TREMOR [None]
